FAERS Safety Report 8249586-X (Version None)
Quarter: 2012Q2

REPORT INFORMATION
  Report Type: 
  Country: None (occurrence: None)
  Receive Date: 20120402
  Receipt Date: 20120326
  Transmission Date: 20120825
  Serious: Yes (Congenital Anomaly)
  Sender: FDA-Public Use
  Company Number: FR-ASTELLAS-2011EU000346

PATIENT
  Sex: Female

DRUGS (8)
  1. CALCIUM CARBONATE [Suspect]
     Indication: FOETAL EXPOSURE DURING PREGNANCY
     Dosage: 1 DF, DAILY
     Route: 064
     Dates: end: 20090515
  2. INNOHEP [Suspect]
     Indication: FOETAL EXPOSURE DURING PREGNANCY
     Dosage: 0.5 ML, UNKNOWN/D
     Route: 064
     Dates: start: 20000101, end: 20090515
  3. JOSAMYCIN [Concomitant]
     Indication: FOETAL EXPOSURE DURING PREGNANCY
     Dosage: UNK
     Route: 064
  4. ASPEGIC 1000 [Suspect]
     Indication: FOETAL EXPOSURE DURING PREGNANCY
     Dosage: 250 MEQ/ML, DAILY
     Route: 064
     Dates: end: 20090501
  5. URSODIOL [Suspect]
     Indication: FOETAL EXPOSURE DURING PREGNANCY
     Dosage: 200 MG, QID
     Route: 064
     Dates: end: 20090515
  6. PROGRAF [Suspect]
     Indication: FOETAL EXPOSURE DURING PREGNANCY
     Dosage: 2.5 G , DAILY
     Route: 064
     Dates: end: 20090515
  7. MYCOPHENOLATE MOFETIL (CELLCEPT) [Suspect]
     Indication: FOETAL EXPOSURE DURING PREGNANCY
     Dosage: 500 MG, DAILY
     Route: 064
  8. PENTASA [Concomitant]
     Dosage: 1 DF, UNKNOWN/D
     Route: 064
     Dates: start: 20090223, end: 20090515

REACTIONS (1)
  - DYSMORPHISM [None]
